FAERS Safety Report 5360643-8 (Version None)
Quarter: 2007Q2

REPORT INFORMATION
  Report Type: 
  Country: None (occurrence: None)
  Receive Date: 20070618
  Receipt Date: 20070605
  Transmission Date: 20071010
  Serious: Yes (Other)
  Sender: FDA-Public Use
  Company Number: DE-ROCHE-500497

PATIENT
  Age: 49 Year
  Sex: Female

DRUGS (2)
  1. ROCEPHIN [Suspect]
     Indication: DRUG USE FOR UNKNOWN INDICATION
     Dosage: FORM REPORTED AS INFUSION. DRUG WAS REPORTED AS ROCEPHIN ZUR INFUSION.
     Route: 042
     Dates: start: 20070515, end: 20070524
  2. NOVALGIN [Concomitant]
     Dosage: TAKEN WHEN NEEDED (PRN).

REACTIONS (2)
  - ANGIOEDEMA [None]
  - URTICARIA [None]
